FAERS Safety Report 8298150-5 (Version None)
Quarter: 2012Q2

REPORT INFORMATION
  Report Type: 
  Country: None (occurrence: None)
  Receive Date: 20120419
  Receipt Date: 20120411
  Transmission Date: 20120825
  Serious: Yes (Hospitalization)
  Sender: FDA-Public Use
  Company Number: US-ROCHE-1053809

PATIENT
  Sex: Male
  Weight: 74.456 kg

DRUGS (4)
  1. ANDROGEL [Concomitant]
     Dosage: 1 PACKAGE DAILY.
     Route: 065
  2. TAMIFLU [Suspect]
     Indication: INFLUENZA
     Route: 065
     Dates: end: 20120312
  3. HYDROCORTISONE [Concomitant]
     Route: 048
  4. LEVOTHYROXINE SODIUM [Concomitant]
     Route: 065

REACTIONS (1)
  - CONFUSIONAL STATE [None]
